FAERS Safety Report 5097082-3 (Version None)
Quarter: 2006Q3

REPORT INFORMATION
  Report Type: 
  Country: None (occurrence: None)
  Receive Date: 20060906
  Receipt Date: 20060828
  Transmission Date: 20061208
  Serious: Yes (Hospitalization)
  Sender: FDA-Public Use
  Company Number: US-JNJFOC-20060806495

PATIENT
  Sex: Female
  Weight: 64.41 kg

DRUGS (3)
  1. DURAGESIC-100 [Suspect]
     Indication: PAIN
     Route: 062
  2. METHADONE HCL [Concomitant]
     Indication: PAIN
     Route: 048
  3. ROBAXIN [Concomitant]
     Indication: PAIN
     Route: 048

REACTIONS (3)
  - CEREBRAL CYST [None]
  - HYPOAESTHESIA [None]
  - MOBILITY DECREASED [None]
